FAERS Safety Report 4797396-8 (Version None)
Quarter: 2005Q4

REPORT INFORMATION
  Report Type: 
  Country: None (occurrence: None)
  Receive Date: 20051013
  Receipt Date: 20051010
  Transmission Date: 20060501
  Serious: Yes (Hospitalization)
  Sender: FDA-Public Use
  Company Number: US-JNJFOC-20051001930

PATIENT
  Sex: Female

DRUGS (1)
  1. DOXIL [Suspect]
     Route: 042

REACTIONS (2)
  - ALVEOLITIS ALLERGIC [None]
  - RASH [None]
